FAERS Safety Report 11845610 (Version 1)
Quarter: 2015Q4

REPORT INFORMATION
  Report Type: Other
  Country: GB (occurrence: GB)
  Receive Date: 20151217
  Receipt Date: 20151217
  Transmission Date: 20160305
  Serious: Yes (Death)
  Sender: FDA-Public Use
  Company Number: GB-MYLANLABS-2015M1043817

PATIENT

DRUGS (1)
  1. CAPECITABINE. [Suspect]
     Active Substance: CAPECITABINE
     Indication: COLON CANCER
     Dosage: 1300 MG, BID
     Route: 048
     Dates: start: 20150607, end: 20150614

REACTIONS (1)
  - Multi-organ failure [Fatal]

NARRATIVE: CASE EVENT DATE: 20150614
